FAERS Safety Report 8350637-2 (Version None)
Quarter: 2012Q2

REPORT INFORMATION
  Report Type: 
  Country: None (occurrence: None)
  Receive Date: 20120510
  Receipt Date: 20120504
  Transmission Date: 20120825
  Serious: Yes (Other)
  Sender: FDA-Public Use
  Company Number: PHHY2012BR038899

PATIENT
  Age: 77 Year
  Sex: Male

DRUGS (1)
  1. EXFORGE [Suspect]
     Dosage: 80/5 MG, UNK

REACTIONS (1)
  - CEREBROVASCULAR ACCIDENT [None]
